FAERS Safety Report 11506190 (Version 1)
Quarter: 2015Q3

REPORT INFORMATION
  Report Type: Spontaneous
  Country: US (occurrence: US)
  Receive Date: 20150915
  Receipt Date: 20150915
  Transmission Date: 20151125
  Serious: No
  Sender: FDA-Public Use
  Company Number: US-ROCHE-781457

PATIENT
  Sex: Female

DRUGS (2)
  1. PEGASYS [Suspect]
     Active Substance: PEGINTERFERON ALFA-2A
     Indication: HEPATITIS C
     Route: 058
  2. RIBASPHERE [Suspect]
     Active Substance: RIBAVIRIN
     Indication: HEPATITIS C
     Dosage: DOSE:600 MG AM AND 600 MG PM AS REPORTED
     Route: 048

REACTIONS (6)
  - Fatigue [Unknown]
  - Platelet count decreased [Unknown]
  - Nausea [Unknown]
  - Migraine [Unknown]
  - Incontinence [Unknown]
  - Diarrhoea [Unknown]
